FAERS Safety Report 8595735 (Version 3)
Quarter: 2013Q1

REPORT INFORMATION
  Report Type: Spontaneous
  Country: FR (occurrence: FR)
  Receive Date: 20120604
  Receipt Date: 20130328
  Transmission Date: 20140127
  Serious: Yes (Hospitalization, Other)
  Sender: FDA-Public Use
  Company Number: FR-TEVA-311509ISR

PATIENT
  Age: 75 None
  Sex: Female

DRUGS (7)
  1. AZILECT [Suspect]
     Indication: PARKINSON^S DISEASE
     Dosage: 1 MILLIGRAM DAILY;
     Route: 048
     Dates: start: 201109, end: 20111102
  2. ZOLOFT [Interacting]
     Indication: MAJOR DEPRESSION
     Dosage: 50 MILLIGRAM DAILY;
     Route: 048
     Dates: start: 201109, end: 201110
  3. ZOLOFT [Interacting]
     Dosage: 100 MILLIGRAM DAILY;
     Route: 048
     Dates: start: 201110, end: 20111102
  4. STALEVO [Interacting]
     Indication: PARKINSON^S DISEASE
     Dosage: 3 DOSAGE FORMS DAILY; CARBIDOPA 50MG+ENTACAPONE 200MG+LEVODOPA 200MG
  5. MANTADIX 100 [Concomitant]
     Dosage: 200 MILLIGRAM DAILY;
     Dates: start: 201109, end: 20111108
  6. MOPRAL [Concomitant]
  7. LEVOTHYROX [Concomitant]
     Route: 048

REACTIONS (8)
  - Serotonin syndrome [Recovered/Resolved]
  - Rhabdomyolysis [Recovering/Resolving]
  - Encephalopathy [Recovering/Resolving]
  - Renal failure [Recovering/Resolving]
  - Confusional state [Recovering/Resolving]
  - Extrapyramidal disorder [Recovering/Resolving]
  - Dehydration [Recovering/Resolving]
  - Drug interaction [Recovering/Resolving]
